FAERS Safety Report 13906310 (Version 1)
Quarter: 2017Q3

REPORT INFORMATION
  Report Type: Spontaneous
  Country: US (occurrence: US)
  Receive Date: 20170825
  Receipt Date: 20170825
  Transmission Date: 20171127
  Serious: No
  Sender: FDA-Public Use
  Company Number: PHEH2017US026708

PATIENT
  Sex: Female

DRUGS (1)
  1. TRAVOPROST. [Suspect]
     Active Substance: TRAVOPROST
     Indication: INTRAOCULAR PRESSURE TEST ABNORMAL
     Route: 047

REACTIONS (2)
  - Intraocular pressure increased [Unknown]
  - Drug ineffective [Unknown]
